FAERS Safety Report 4600923-4 (Version None)
Quarter: 2005Q1

REPORT INFORMATION
  Report Type: 
  Country: None (occurrence: None)
  Receive Date: 20050127
  Receipt Date: 20041022
  Transmission Date: 20050727
  Serious: No
  Sender: FDA-Public Use
  Company Number: USA041082058

PATIENT
  Age: 20 Year
  Sex: Male
  Weight: 109 kg

DRUGS (4)
  1. STRATTERA [Suspect]
     Indication: ATTENTION DEFICIT/HYPERACTIVITY DISORDER
     Dosage: 60 MG DAY
     Dates: start: 20041020
  2. MONOPRIL [Concomitant]
  3. LIPITOR [Concomitant]
  4. ZOLOFT [Concomitant]

REACTIONS (4)
  - EXTRASYSTOLES [None]
  - INSOMNIA [None]
  - IRRITABILITY [None]
  - PALPITATIONS [None]
